FAERS Safety Report 9319603 (Version 1)
Quarter: 2013Q2

REPORT INFORMATION
  Report Type: Spontaneous
  Country: US (occurrence: US)
  Receive Date: 20130530
  Receipt Date: 20130530
  Transmission Date: 20140414
  Serious: Yes (Hospitalization)
  Sender: FDA-Public Use
  Company Number: US-GLAXOSMITHKLINE-A1011167A

PATIENT
  Age: 59 Year
  Sex: Female

DRUGS (5)
  1. FLOLAN [Suspect]
     Indication: PRODUCT USED FOR UNKNOWN INDICATION
     Dosage: 22NGKM CONTINUOUS
     Route: 042
     Dates: start: 20080116
  2. VANCOMYCIN [Concomitant]
  3. LETAIRIS [Concomitant]
  4. REVATIO [Concomitant]
  5. LASIX [Concomitant]

REACTIONS (1)
  - Device related infection [Unknown]
